FAERS Safety Report 13846567 (Version 2)
Quarter: 2017Q3

REPORT INFORMATION
  Report Type: Report from Study
  Country: IL (occurrence: IL)
  Receive Date: 20170808
  Receipt Date: 20170830
  Transmission Date: 20171127
  Serious: Yes (Hospitalization, Other)
  Sender: FDA-Public Use
  Company Number: PHHY2017IL073921

PATIENT
  Age: 72 Year
  Sex: Female

DRUGS (4)
  1. RECLAST [Suspect]
     Active Substance: ZOLEDRONIC ACID
     Indication: PRODUCT USED FOR UNKNOWN INDICATION
     Dosage: UNK UNK, QMO
     Route: 042
     Dates: start: 20170720
  2. AFINITOR [Suspect]
     Active Substance: EVEROLIMUS
     Dosage: 10 MG, QD
     Route: 048
     Dates: start: 20170714, end: 20170730
  3. AFINITOR [Suspect]
     Active Substance: EVEROLIMUS
     Indication: BREAST CANCER
     Dosage: 10 MG, QD
     Route: 048
     Dates: start: 20170511, end: 20170605
  4. AROMASIN [Concomitant]
     Active Substance: EXEMESTANE
     Indication: PRODUCT USED FOR UNKNOWN INDICATION
     Dosage: UNK
     Route: 065

REACTIONS (16)
  - Swelling [Not Recovered/Not Resolved]
  - Oedema peripheral [Not Recovered/Not Resolved]
  - Breast cancer [Unknown]
  - Blood glucose increased [Not Recovered/Not Resolved]
  - Insomnia [Not Recovered/Not Resolved]
  - Hypertension [Unknown]
  - Pain [Not Recovered/Not Resolved]
  - Confusional state [Unknown]
  - Productive cough [Not Recovered/Not Resolved]
  - Swelling face [Recovered/Resolved]
  - Headache [Unknown]
  - Asthenia [Not Recovered/Not Resolved]
  - Metastases to spine [Unknown]
  - Chills [Recovered/Resolved]
  - Malignant neoplasm progression [Unknown]
  - Abdominal pain upper [Not Recovered/Not Resolved]

NARRATIVE: CASE EVENT DATE: 20170601
